FAERS Safety Report 11071187 (Version 2)
Quarter: 2015Q2

REPORT INFORMATION
  Report Type: Spontaneous
  Country: HU (occurrence: HU)
  Receive Date: 20150428
  Receipt Date: 20150525
  Transmission Date: 20150821
  Serious: Yes (Hospitalization, Other)
  Sender: FDA-Public Use
  Company Number: HU-PFIZER INC-2015138045

PATIENT
  Age: 70 Year
  Sex: Female

DRUGS (10)
  1. NORVASC [Concomitant]
     Active Substance: AMLODIPINE BESYLATE
     Dosage: UNK
  2. APO-FAMOTIDIN [Concomitant]
     Dosage: UNK
  3. CO-RENITEC [Concomitant]
     Active Substance: ENALAPRIL\HYDROCHLOROTHIAZIDE
     Dosage: UNK
  4. ASA [Concomitant]
     Active Substance: ASPIRIN
     Dosage: UNK
  5. OLICARD RETARD [Concomitant]
     Dosage: UNK
  6. BETALOC [Concomitant]
     Active Substance: METOPROLOL TARTRATE
     Dosage: UNK
  7. CARDURA [Concomitant]
     Active Substance: DOXAZOSIN MESYLATE
     Dosage: UNK
  8. MILURIT [Concomitant]
     Active Substance: ALLOPURINOL
     Dosage: UNK
  9. BOSULIF [Suspect]
     Active Substance: BOSUTINIB MONOHYDRATE
     Indication: CHRONIC MYELOID LEUKAEMIA
     Dosage: 500 MG, 1X/DAY
     Route: 048
     Dates: start: 20150220
  10. XANAX [Concomitant]
     Active Substance: ALPRAZOLAM
     Dosage: UNK

REACTIONS (3)
  - Hepatic failure [Recovering/Resolving]
  - Anaemia [Unknown]
  - White blood cell count increased [Unknown]
